FAERS Safety Report 10411867 (Version 2)
Quarter: 2014Q4

REPORT INFORMATION
  Report Type: Spontaneous
  Country: US (occurrence: None)
  Receive Date: 20140604
  Receipt Date: 20141010
  Transmission Date: 20150528
  Serious: No
  Sender: FDA-Public Use
  Company Number: 163-POMAL-14040337

PATIENT
  Age: 69 Year
  Sex: Male
  Weight: 86.2 kg

DRUGS (6)
  1. POMALYST [Suspect]
     Active Substance: POMALIDOMIDE
     Indication: PLASMA CELL MYELOMA
     Dosage: 2 MG, 21 IN 28 D, PO
     Route: 048
     Dates: start: 20131017
  2. VITAMIN D (ERGOCALCIFEROL) [Concomitant]
     Active Substance: ERGOCALCIFEROL
  3. COUMADIN [Concomitant]
     Active Substance: WARFARIN SODIUM
  4. DEXAMETHASONE. [Concomitant]
     Active Substance: DEXAMETHASONE
  5. ACYCLOVIR (ACICLOVIR) [Concomitant]
  6. COZAAR (LOSARTAN POTASSIUM) [Concomitant]

REACTIONS (1)
  - Arthritis [None]
